FAERS Safety Report 10476561 (Version 2)
Quarter: 2015Q1

REPORT INFORMATION
  Report Type: Spontaneous
  Country: US (occurrence: None)
  Receive Date: 20140923
  Receipt Date: 20150202
  Transmission Date: 20150720
  Serious: Yes (Hospitalization)
  Sender: FDA-Public Use
  Company Number: US-H14001-14-00646

PATIENT
  Age: 64 Year
  Sex: Male

DRUGS (4)
  1. LOVENOX [Suspect]
     Active Substance: ENOXAPARIN SODIUM
     Indication: THROMBOSIS PROPHYLAXIS
     Route: 058
     Dates: end: 20130524
  2. BORTEZOMIB (ALL OTHER THERAPEUTIC PRODUCTS) UNKNOWN [Suspect]
     Active Substance: BORTEZOMIB
     Dosage: 2.9 MG (2.9 MG, D1, D4, D8, D11 PER CYCLE)
     Route: 042
     Dates: start: 20130517, end: 20130528
  3. DEXAMETHASONE SODIUM PHOSPHATE. [Suspect]
     Active Substance: DEXAMETHASONE SODIUM PHOSPHATE
     Indication: PLASMA CELL MYELOMA
     Dosage: 20 MG (20 MG, D1, 2, 4, 5. 8, 9, 11, 12 PER CYCLE)
     Route: 042
     Dates: start: 20130517, end: 20130529
  4. CYCLOPHOSPHAMIDE (CYCLOPHOSPHAMIDE) [Suspect]
     Active Substance: CYCLOPHOSPHAMIDE
     Indication: PLASMA CELL MYELOMA
     Dosage: 660 MG (660 MG, D1, D8 PER CYCLE)
     Route: 042
     Dates: start: 20130517, end: 20130517

REACTIONS (3)
  - Haematuria [None]
  - Urinary retention [None]
  - Urinary tract infection [None]

NARRATIVE: CASE EVENT DATE: 20130524
